FAERS Safety Report 6400903-2 (Version None)
Quarter: 2009Q4

REPORT INFORMATION
  Report Type: 
  Country: None (occurrence: None)
  Receive Date: 20091009
  Receipt Date: 20090924
  Transmission Date: 20100525
  Serious: Yes (Other)
  Sender: FDA-Public Use
  Company Number: 2009002113

PATIENT
  Age: 67 Year
  Sex: Male

DRUGS (1)
  1. TARCEVA [Suspect]
     Indication: LUNG NEOPLASM MALIGNANT
     Dosage: (150 MG,QD), ORAL
     Route: 048
     Dates: start: 20090622

REACTIONS (5)
  - BLINDNESS [None]
  - DIARRHOEA [None]
  - ERYTHEMA OF EYELID [None]
  - EYE IRRITATION [None]
  - OCULAR HYPERAEMIA [None]
